FAERS Safety Report 26056031 (Version 1)
Quarter: 2025Q4

REPORT INFORMATION
  Report Type: Spontaneous
  Country: CA (occurrence: CA)
  Receive Date: 20251118
  Receipt Date: 20251118
  Transmission Date: 20260117
  Serious: Yes (Other)
  Sender: Haleon PLC
  Company Number: CA-HALEON-2274389

PATIENT
  Age: 60 Year
  Sex: Male

DRUGS (88)
  1. FLONASE ALLERGY RELIEF [Suspect]
     Active Substance: FLUTICASONE PROPIONATE
     Indication: Asthma
     Dosage: ROUTE: UNKNOWN
  2. FLONASE ALLERGY RELIEF [Suspect]
     Active Substance: FLUTICASONE PROPIONATE
     Dosage: ROUTE: UNKNOWN
  3. ASPIRIN [Suspect]
     Active Substance: ASPIRIN
     Indication: Product used for unknown indication
     Dosage: ROUTE: UNKNOWN
  4. BUDESONIDE [Suspect]
     Active Substance: BUDESONIDE
     Indication: Product used for unknown indication
     Dosage: ROUTE: UNKNOWN
  5. BUDESONIDE [Suspect]
     Active Substance: BUDESONIDE
     Dosage: ROUTE: UNKNOWN
  6. BUDESONIDE [Suspect]
     Active Substance: BUDESONIDE
     Dosage: ROUTE: UNKNOWN
  7. NUCALA [Suspect]
     Active Substance: MEPOLIZUMAB
     Indication: Asthma
     Dosage: ROUTE: UNKNOWN
  8. NUCALA [Suspect]
     Active Substance: MEPOLIZUMAB
     Dosage: ROUTE: UNKNOWN
  9. NUCALA [Suspect]
     Active Substance: MEPOLIZUMAB
     Dosage: ROUTE: INTRAVENOUS (NOT OTHERWISE SPECIFIED)
  10. NUCALA [Suspect]
     Active Substance: MEPOLIZUMAB
     Dosage: ROUTE: INTRAVENOUS (NOT OTHERWISE SPECIFIED)
  11. NUCALA [Suspect]
     Active Substance: MEPOLIZUMAB
     Dosage: ROUTE: UNKNOWN
  12. NUCALA [Suspect]
     Active Substance: MEPOLIZUMAB
     Dosage: ROUTE: INTRAVENOUS (NOT OTHERWISE SPECIFIED)
  13. NUCALA [Suspect]
     Active Substance: MEPOLIZUMAB
     Dosage: ROUTE: UNKNOWN
  14. NUCALA [Suspect]
     Active Substance: MEPOLIZUMAB
     Dosage: ROUTE: INTRAVENOUS (NOT OTHERWISE SPECIFIED)
  15. NUCALA [Suspect]
     Active Substance: MEPOLIZUMAB
     Dosage: ROUTE: INTRAVENOUS (NOT OTHERWISE SPECIFIED)
  16. ROSUVASTATIN CALCIUM [Suspect]
     Active Substance: ROSUVASTATIN CALCIUM
     Indication: Product used for unknown indication
     Dosage: ROUTE: UNKNOWN
  17. ROSUVASTATIN CALCIUM [Suspect]
     Active Substance: ROSUVASTATIN CALCIUM
     Indication: Hypersensitivity vasculitis
     Dosage: ROUTE: ORAL
  18. ALBUTEROL [Suspect]
     Active Substance: ALBUTEROL
     Indication: Vasculitis
     Dosage: ROUTE: UNKNOWN
  19. ALBUTEROL [Suspect]
     Active Substance: ALBUTEROL
     Indication: Product used for unknown indication
     Dosage: ROUTE: UNKNOWN
  20. ALBUTEROL [Suspect]
     Active Substance: ALBUTEROL
     Indication: Hypersensitivity vasculitis
     Dosage: ROUTE: UNKNOWN
  21. ALBUTEROL [Suspect]
     Active Substance: ALBUTEROL
     Indication: Eosinophilia
     Dosage: ROUTE: UNKNOWN
  22. ALBUTEROL [Suspect]
     Active Substance: ALBUTEROL
     Dosage: ROUTE: UNKNOWN
  23. ALBUTEROL [Suspect]
     Active Substance: ALBUTEROL
     Dosage: ROUTE: UNKNOWN
  24. ALBUTEROL [Suspect]
     Active Substance: ALBUTEROL
     Dosage: ROUTE: UNKNOWN
  25. ALBUTEROL [Suspect]
     Active Substance: ALBUTEROL
     Dosage: ROUTE: UNKNOWN
  26. ALBUTEROL [Suspect]
     Active Substance: ALBUTEROL
     Dosage: ROUTE: UNKNOWN
  27. ALBUTEROL [Suspect]
     Active Substance: ALBUTEROL
     Dosage: ROUTE: UNKNOWN
  28. ALBUTEROL [Suspect]
     Active Substance: ALBUTEROL
     Dosage: ROUTE: UNKNOWN
  29. ALBUTEROL [Suspect]
     Active Substance: ALBUTEROL
     Dosage: ROUTE: UNKNOWN
  30. ALBUTEROL [Suspect]
     Active Substance: ALBUTEROL
     Dosage: ROUTE: UNKNOWN
  31. ALBUTEROL [Suspect]
     Active Substance: ALBUTEROL
     Indication: Product used for unknown indication
     Dosage: FORMULATION: METERED-DOSE (AEROSOL), ROUTE: UNKNOWN
  32. VENTOLIN HFA [Suspect]
     Active Substance: ALBUTEROL SULFATE
     Indication: Vasculitis
     Dosage: FORMULATION: METERED-DOSE (AEROSOL), ROUTE: UNKNOWN
  33. VENTOLIN HFA [Suspect]
     Active Substance: ALBUTEROL SULFATE
     Indication: Eosinophilia
  34. ZENHALE [Suspect]
     Active Substance: FORMOTEROL FUMARATE\MOMETASONE FUROATE
     Indication: Productive cough
     Dosage: ROUTE: UNKNOWN
  35. ZENHALE [Suspect]
     Active Substance: FORMOTEROL FUMARATE\MOMETASONE FUROATE
     Indication: Product used for unknown indication
     Dosage: ROUTE: UNKNOWN
  36. ZENHALE [Suspect]
     Active Substance: FORMOTEROL FUMARATE\MOMETASONE FUROATE
     Dosage: ROUTE: UNKNOWN
  37. ZENHALE [Suspect]
     Active Substance: FORMOTEROL FUMARATE\MOMETASONE FUROATE
     Dosage: ROUTE: UNKNOWN
  38. ZENHALE [Suspect]
     Active Substance: FORMOTEROL FUMARATE\MOMETASONE FUROATE
     Dosage: ROUTE: UNKNOWN
  39. ZENHALE [Suspect]
     Active Substance: FORMOTEROL FUMARATE\MOMETASONE FUROATE
     Dosage: ROUTE: UNKNOWN
  40. ZENHALE [Suspect]
     Active Substance: FORMOTEROL FUMARATE\MOMETASONE FUROATE
     Dosage: ROUTE: UNKNOWN
  41. AZATHIOPRINE [Suspect]
     Active Substance: AZATHIOPRINE
     Indication: Product used for unknown indication
     Dosage: ROUTE: UNKNOWN
  42. AZATHIOPRINE [Suspect]
     Active Substance: AZATHIOPRINE
     Dosage: ROUTE: UNKNOWN
  43. AZATHIOPRINE [Suspect]
     Active Substance: AZATHIOPRINE
     Dosage: ROUTE: UNKNOWN
  44. AZATHIOPRINE [Suspect]
     Active Substance: AZATHIOPRINE
     Dosage: ROUTE: UNKNOWN
  45. AZATHIOPRINE [Suspect]
     Active Substance: AZATHIOPRINE
     Dosage: ROUTE: UNKNOWN
  46. AZATHIOPRINE [Suspect]
     Active Substance: AZATHIOPRINE
     Dosage: ROUTE: UNKNOWN
  47. BUDESONIDE\FORMOTEROL FUMARATE [Suspect]
     Active Substance: BUDESONIDE\FORMOTEROL FUMARATE
     Indication: Productive cough
     Dosage: ROUTE: UNKNOWN
  48. BUDESONIDE\FORMOTEROL FUMARATE [Suspect]
     Active Substance: BUDESONIDE\FORMOTEROL FUMARATE
     Indication: Product used for unknown indication
     Dosage: ROUTE: UNKNOWN
  49. BUDESONIDE\FORMOTEROL FUMARATE [Suspect]
     Active Substance: BUDESONIDE\FORMOTEROL FUMARATE
     Dosage: ROUTE: UNKNOWN
  50. BUDESONIDE\FORMOTEROL FUMARATE [Suspect]
     Active Substance: BUDESONIDE\FORMOTEROL FUMARATE
     Dosage: ROUTE: UNKNOWN
  51. BUDESONIDE\FORMOTEROL FUMARATE [Suspect]
     Active Substance: BUDESONIDE\FORMOTEROL FUMARATE
     Dosage: ROUTE: UNKNOWN
  52. BUDESONIDE\FORMOTEROL FUMARATE [Suspect]
     Active Substance: BUDESONIDE\FORMOTEROL FUMARATE
     Dosage: ROUTE: UNKNOWN
  53. FLUTICASONE PROPIONATE\SALMETEROL XINAFOATE [Suspect]
     Active Substance: FLUTICASONE PROPIONATE\SALMETEROL XINAFOATE
     Indication: Product used for unknown indication
     Dosage: ROUTE: UNKNOWN
  54. FLUTICASONE PROPIONATE\SALMETEROL XINAFOATE [Suspect]
     Active Substance: FLUTICASONE PROPIONATE\SALMETEROL XINAFOATE
     Dosage: ROUTE: UNKNOWN
  55. FORMOTEROL FUMARATE [Suspect]
     Active Substance: FORMOTEROL FUMARATE
     Indication: Productive cough
     Dosage: ROUTE: UNKNOWN
  56. FORMOTEROL FUMARATE [Suspect]
     Active Substance: FORMOTEROL FUMARATE
     Indication: Product used for unknown indication
     Dosage: ROUTE: UNKNOWN
  57. FORMOTEROL FUMARATE [Suspect]
     Active Substance: FORMOTEROL FUMARATE
     Dosage: ROUTE: UNKNOWN
  58. FORMOTEROL FUMARATE [Suspect]
     Active Substance: FORMOTEROL FUMARATE
     Dosage: ROUTE: UNKNOWN
  59. FORMOTEROL FUMARATE [Suspect]
     Active Substance: FORMOTEROL FUMARATE
     Dosage: ROUTE: UNKNOWN
  60. GLYCOPYRROLATE [Suspect]
     Active Substance: GLYCOPYRROLATE
     Indication: Product used for unknown indication
     Dosage: ROUTE: UNKNOWN
  61. MOMETASONE [Suspect]
     Active Substance: MOMETASONE
     Indication: Product used for unknown indication
     Dosage: ROUTE: UNKNOWN
  62. MOMETASONE [Suspect]
     Active Substance: MOMETASONE
     Indication: Cough
     Dosage: ROUTE: UNKNOWN
  63. MOMETASONE FUROATE [Suspect]
     Active Substance: MOMETASONE FUROATE
     Indication: Product used for unknown indication
     Dosage: ROUTE: UNKNOWN
  64. PREDNISONE [Suspect]
     Active Substance: PREDNISONE
     Indication: Product used for unknown indication
     Dosage: ROUTE: UNKNOWN
  65. PREDNISONE [Suspect]
     Active Substance: PREDNISONE
     Dosage: ROUTE: UNKNOWN
  66. PREDNISONE [Suspect]
     Active Substance: PREDNISONE
     Dosage: ROUTE: ORAL
  67. PREDNISONE ACETATE [Suspect]
     Active Substance: PREDNISONE ACETATE
     Indication: Product used for unknown indication
     Dosage: ROUTE: ORAL
  68. PREDNISONE ACETATE [Suspect]
     Active Substance: PREDNISONE ACETATE
     Dosage: ROUTE: UNKNOWN
  69. PREDNISONE ACETATE [Suspect]
     Active Substance: PREDNISONE ACETATE
     Dosage: ROUTE: UNKNOWN
  70. PREDNISONE ACETATE [Suspect]
     Active Substance: PREDNISONE ACETATE
     Dosage: ROUTE: UNKNOWN
  71. PREDNISONE ACETATE [Suspect]
     Active Substance: PREDNISONE ACETATE
     Dosage: ROUTE: UNKNOWN
  72. SPIRIVA [Suspect]
     Active Substance: TIOTROPIUM BROMIDE MONOHYDRATE
     Indication: Product used for unknown indication
     Dosage: ROUTE: UNKNOWN
  73. SPIRIVA [Suspect]
     Active Substance: TIOTROPIUM BROMIDE MONOHYDRATE
     Dosage: ROUTE: UNKNOWN
  74. TIOTROPIUM BROMIDE MONOHYDRATE [Suspect]
     Active Substance: TIOTROPIUM BROMIDE MONOHYDRATE
     Indication: Product used for unknown indication
     Dosage: ROUTE: UNKNOWN
  75. VENTOLIN [Suspect]
     Active Substance: ALBUTEROL SULFATE
     Indication: Vasculitis
     Dosage: ROUTE: UNKNOWN
  76. VENTOLIN [Suspect]
     Active Substance: ALBUTEROL SULFATE
     Indication: Eosinophilia
     Dosage: ROUTE: UNKNOWN
  77. VENTOLIN HFA [Suspect]
     Active Substance: ALBUTEROL SULFATE
     Indication: Vasculitis
     Dosage: ROUTE: UNKNOWN
  78. VENTOLIN HFA [Suspect]
     Active Substance: ALBUTEROL SULFATE
     Indication: Eosinophilia
     Dosage: ROUTE: UNKNOWN
  79. VENTOLIN HFA [Suspect]
     Active Substance: ALBUTEROL SULFATE
     Dosage: ROUTE: UNKNOWN
  80. VENTOLIN HFA [Suspect]
     Active Substance: ALBUTEROL SULFATE
     Dosage: ROUTE: UNKNOWN
  81. VENTOLIN HFA [Suspect]
     Active Substance: ALBUTEROL SULFATE
     Dosage: ROUTE: UNKNOWN
  82. VENTOLIN HFA [Suspect]
     Active Substance: ALBUTEROL SULFATE
     Dosage: ROUTE: UNKNOWN
  83. VENTOLIN HFA [Suspect]
     Active Substance: ALBUTEROL SULFATE
     Dosage: ROUTE: UNKNOWN
  84. VENTOLIN HFA [Suspect]
     Active Substance: ALBUTEROL SULFATE
     Dosage: ROUTE: UNKNOWN
  85. ZENHALE [Suspect]
     Active Substance: FORMOTEROL FUMARATE\MOMETASONE FUROATE
     Indication: Productive cough
     Dosage: FORMULATION: AEROSOL, METERED DOSE, ROUTE: UNKNOWN
  86. ZENHALE [Suspect]
     Active Substance: FORMOTEROL FUMARATE\MOMETASONE FUROATE
     Indication: Product used for unknown indication
  87. ASPIRIN [Suspect]
     Active Substance: ASPIRIN
     Indication: Product used for unknown indication
     Dosage: ROUTE: UNKNOWN
  88. ASPIRIN [Suspect]
     Active Substance: ASPIRIN
     Indication: Product used for unknown indication
     Dosage: ROUTE: UNKNOWN

REACTIONS (18)
  - Eosinophilic granulomatosis with polyangiitis [Recovered/Resolved]
  - Haemoptysis [Recovered/Resolved]
  - Asthma [Recovered/Resolved]
  - Cough [Recovered/Resolved]
  - Disease recurrence [Recovered/Resolved]
  - Drug dependence [Recovered/Resolved]
  - Dyspnoea [Recovered/Resolved]
  - Eosinophil count increased [Recovered/Resolved]
  - Full blood count abnormal [Recovered/Resolved]
  - Gastrooesophageal reflux disease [Recovered/Resolved]
  - Hypoaesthesia [Recovered/Resolved]
  - Malaise [Recovered/Resolved]
  - Neuropathy peripheral [Recovered/Resolved]
  - Paraesthesia [Recovered/Resolved]
  - Productive cough [Recovered/Resolved]
  - Therapeutic product effect incomplete [Recovered/Resolved]
  - Upper respiratory tract infection [Recovered/Resolved]
  - Vasculitis [Recovered/Resolved]
